FAERS Safety Report 8960170 (Version 1)
Quarter: 2012Q4

REPORT INFORMATION
  Report Type: 
  Country: JP (occurrence: JP)
  Receive Date: 20121211
  Receipt Date: 20121211
  Transmission Date: 20130627
  Serious: Yes (Hospitalization)
  Sender: FDA-Public Use
  Company Number: JP-BAXTER-2012BAX026381

PATIENT
  Sex: Male

DRUGS (1)
  1. ENDOXAN [Suspect]
     Indication: BONE MARROW CONDITIONING REGIMEN
     Route: 042

REACTIONS (1)
  - Pericardial effusion [Not Recovered/Not Resolved]
